FAERS Safety Report 5863206-0 (Version None)
Quarter: 2008Q3

REPORT INFORMATION
  Report Type: 
  Country: None (occurrence: None)
  Receive Date: 20080828
  Receipt Date: 20080813
  Transmission Date: 20090109
  Serious: Yes (Other)
  Sender: FDA-Public Use
  Company Number: FR-PURDUE-MAG_2008_0000714

PATIENT
  Age: 53 Year
  Sex: Female

DRUGS (9)
  1. POVIDONE IODINE SURGICAL SCRUB 4.0% [Suspect]
     Indication: DRUG USE FOR UNKNOWN INDICATION
     Dosage: 1 DF, UNK
     Route: 003
     Dates: start: 20080730, end: 20080730
  2. SEROPLEX [Concomitant]
     Indication: DRUG USE FOR UNKNOWN INDICATION
     Route: 065
  3. CRESTOR [Concomitant]
     Indication: DRUG USE FOR UNKNOWN INDICATION
     Route: 065
  4. HERBESAN [Concomitant]
     Indication: DRUG USE FOR UNKNOWN INDICATION
     Route: 065
  5. IXPRIM [Concomitant]
     Indication: DRUG USE FOR UNKNOWN INDICATION
     Route: 065
     Dates: start: 20080621, end: 20080626
  6. PANTOPRAZOLE SODIUM [Concomitant]
     Indication: DRUG USE FOR UNKNOWN INDICATION
     Route: 065
     Dates: start: 20080621, end: 20080626
  7. HYPNOVEL [Concomitant]
     Indication: ANAESTHESIA
     Route: 065
  8. SULFENTANYL [Concomitant]
     Indication: ANAESTHESIA
     Route: 065
  9. ETHYL-AMIDON [Concomitant]
     Indication: ANAESTHESIA
     Route: 065

REACTIONS (1)
  - TOXIC SKIN ERUPTION [None]
